FAERS Safety Report 21592969 (Version 1)
Quarter: 2022Q4

REPORT INFORMATION
  Report Type: Spontaneous
  Country: GB (occurrence: GB)
  Receive Date: 20221114
  Receipt Date: 20221114
  Transmission Date: 20230113
  Serious: Yes (Other)
  Sender: FDA-Public Use
  Company Number: GB-BIOMARINAP-GB-2022-146716

PATIENT

DRUGS (2)
  1. BRINEURA [Suspect]
     Active Substance: CERLIPONASE ALFA
     Indication: Product used for unknown indication
     Route: 065
  2. KEPPRA [Concomitant]
     Active Substance: LEVETIRACETAM
     Indication: Seizure

REACTIONS (6)
  - Blindness [Unknown]
  - Petit mal epilepsy [Recovered/Resolved]
  - Screaming [Unknown]
  - Fear [Unknown]
  - Hallucination [Unknown]
  - Mania [Unknown]

NARRATIVE: CASE EVENT DATE: 20220101
